FAERS Safety Report 9689217 (Version 1)
Quarter: 2013Q4

REPORT INFORMATION
  Report Type: Spontaneous
  Country: CA (occurrence: CA)
  Receive Date: 20131114
  Receipt Date: 20131114
  Transmission Date: 20140711
  Serious: Yes (Other)
  Sender: FDA-Public Use
  Company Number: CA-009507513-1311CAN005803

PATIENT
  Sex: Male

DRUGS (1)
  1. AERIUS [Suspect]
     Route: 065

REACTIONS (3)
  - Adverse drug reaction [Unknown]
  - Pharyngeal oedema [Unknown]
  - Dyspnoea [Unknown]
